FAERS Safety Report 23236748 (Version 5)
Quarter: 2024Q1

REPORT INFORMATION
  Report Type: Spontaneous
  Country: JP (occurrence: JP)
  Receive Date: 20231128
  Receipt Date: 20240131
  Transmission Date: 20240410
  Serious: Yes (Hospitalization, Other)
  Sender: FDA-Public Use
  Company Number: JP-PFIZER INC-PV202300192420

PATIENT
  Age: 73 Year
  Sex: Male

DRUGS (2)
  1. GEMCITABINE HYDROCHLORIDE [Suspect]
     Active Substance: GEMCITABINE HYDROCHLORIDE
     Indication: Transitional cell carcinoma urethra
     Dosage: 900 MG/M2, CYCLIC (20 CYCLES 90% DOSE ON THE FIRST, 8TH, AND 15TH DAYS)
     Route: 042
  2. PACLITAXEL [Suspect]
     Active Substance: PACLITAXEL
     Indication: Transitional cell carcinoma urethra
     Dosage: 160 MG/M2, CYCLIC (20 CYCLES 160 MG/M2 INTRAVENOUSLY, 80% DOSE ON THE FIRST DAY)
     Route: 042

REACTIONS (4)
  - Anaemia [Recovered/Resolved]
  - Diarrhoea [Recovered/Resolved]
  - Duodenitis [Recovered/Resolved]
  - Off label use [Unknown]
